FAERS Safety Report 17419210 (Version 1)
Quarter: 2020Q1

REPORT INFORMATION
  Report Type: Spontaneous
  Country: DK (occurrence: DK)
  Receive Date: 20200214
  Receipt Date: 20200214
  Transmission Date: 20200409
  Serious: Yes (Death, Life-Threatening, Other)
  Sender: FDA-Public Use
  Company Number: DK-SA-2020SA037981

PATIENT
  Age: 76 Year
  Sex: Male

DRUGS (1)
  1. JEVTANA [Suspect]
     Active Substance: CABAZITAXEL
     Indication: PROSTATE CANCER
     Dosage: 44 MG, Q3W   60 MG/ML
     Route: 042
     Dates: start: 20191016

REACTIONS (7)
  - Dyspnoea [Fatal]
  - Respiratory rate increased [Fatal]
  - Cardiac arrest [Fatal]
  - Sepsis [Fatal]
  - Malaise [Fatal]
  - Pyrexia [Fatal]
  - Hypotension [Fatal]

NARRATIVE: CASE EVENT DATE: 20200105
